FAERS Safety Report 8476194-8 (Version None)
Quarter: 2012Q2

REPORT INFORMATION
  Report Type: 
  Country: None (occurrence: None)
  Receive Date: 20120628
  Receipt Date: 20120619
  Transmission Date: 20120825
  Serious: Yes (Death, Hospitalization)
  Sender: FDA-Public Use
  Company Number: US-JNJFOC-20110904841

PATIENT
  Sex: Female
  Weight: 111 kg

DRUGS (5)
  1. MIRAPEX [Concomitant]
     Indication: RESTLESS LEGS SYNDROME
     Route: 048
  2. CLARITIN-D [Concomitant]
     Indication: EAR INFECTION
     Route: 065
  3. ACETAMINOPHEN [Suspect]
     Route: 065
  4. TRAZODONE HCL [Concomitant]
     Indication: PRODUCT USED FOR UNKNOWN INDICATION
     Route: 048
  5. ACETAMINOPHEN [Suspect]
     Indication: PRODUCT USED FOR UNKNOWN INDICATION
     Route: 065

REACTIONS (3)
  - RENAL FAILURE ACUTE [None]
  - OVERDOSE [None]
  - ACUTE HEPATIC FAILURE [None]
